FAERS Safety Report 13766717 (Version 1)
Quarter: 2017Q3

REPORT INFORMATION
  Report Type: Spontaneous
  Country: DE (occurrence: DE)
  Receive Date: 20170719
  Receipt Date: 20170719
  Transmission Date: 20171127
  Serious: Yes (Death, Hospitalization, Other)
  Sender: FDA-Public Use
  Company Number: DE-009507513-1705DEU012256

PATIENT
  Age: 67 Year
  Sex: Female
  Weight: 55 kg

DRUGS (1)
  1. KEYTRUDA [Suspect]
     Active Substance: PEMBROLIZUMAB
     Indication: METASTATIC MALIGNANT MELANOMA
     Dosage: 2 MG/KG BODY WEIGHT ONCE EVERY THREE WEEKS
     Route: 042
     Dates: start: 20161012, end: 20161213

REACTIONS (2)
  - Pneumonitis [Recovering/Resolving]
  - Malignant neoplasm progression [Fatal]

NARRATIVE: CASE EVENT DATE: 20161213
